FAERS Safety Report 13596413 (Version 7)
Quarter: 2017Q4

REPORT INFORMATION
  Report Type: Spontaneous
  Country: US (occurrence: US)
  Receive Date: 20170531
  Receipt Date: 20171115
  Transmission Date: 20180320
  Serious: Yes (Other)
  Sender: FDA-Public Use
  Company Number: PHEH2017US016227

PATIENT
  Sex: Female
  Weight: 95.24 kg

DRUGS (2)
  1. ZOFRAN ODT [Suspect]
     Active Substance: ONDANSETRON HYDROCHLORIDE
     Indication: VOMITING IN PREGNANCY
     Dosage: UNK, QD
     Route: 065
     Dates: start: 20130418, end: 20130618
  2. ONDANSETRON HYDROCHLORIDE. [Suspect]
     Active Substance: ONDANSETRON HYDROCHLORIDE
     Indication: PRODUCT USED FOR UNKNOWN INDICATION
     Dosage: UNK
     Route: 048

REACTIONS (12)
  - Constipation [Unknown]
  - Maternal exposure during pregnancy [Unknown]
  - Dyspnoea [Unknown]
  - Emotional distress [Unknown]
  - Breast tenderness [Unknown]
  - Abdominal pain [Unknown]
  - Anxiety [Unknown]
  - Perinatal depression [Unknown]
  - Injury [Unknown]
  - Pain [Unknown]
  - Panic attack [Unknown]
  - Product use in unapproved indication [Unknown]
